FAERS Safety Report 8579785-9 (Version None)
Quarter: 2012Q3

REPORT INFORMATION
  Report Type: 
  Country: None (occurrence: None)
  Receive Date: 20120808
  Receipt Date: 20120731
  Transmission Date: 20120928
  Serious: Yes (Other)
  Sender: FDA-Public Use
  Company Number: JP-VERTEX PHARMACEUTICALS INC.-AE-2012-011504

PATIENT
  Age: 61 Year
  Sex: Female

DRUGS (15)
  1. LIPACREON [Concomitant]
     Route: 048
  2. LANSOPRAZOLE [Concomitant]
     Route: 048
  3. LOXONIN [Concomitant]
     Route: 048
     Dates: start: 20120613, end: 20120625
  4. REBETOL [Concomitant]
     Route: 048
     Dates: start: 20120702
  5. EVAMYL [Concomitant]
     Route: 048
     Dates: start: 20120613, end: 20120708
  6. PEG-INTRON [Concomitant]
     Route: 058
     Dates: start: 20120709, end: 20120717
  7. MUCOSTA [Concomitant]
     Route: 048
     Dates: start: 20120613, end: 20120625
  8. ALLOPURINOL [Concomitant]
     Route: 048
     Dates: start: 20120615
  9. FOIPAN [Concomitant]
     Route: 048
  10. TELAVIC (TELAPREVIR) [Suspect]
     Indication: HEPATITIS C
     Route: 048
     Dates: start: 20120613
  11. PEG-INTRON [Concomitant]
     Route: 058
     Dates: start: 20120723
  12. GASMOTIN [Concomitant]
     Route: 048
     Dates: start: 20120621
  13. PEG-INTRON [Concomitant]
     Indication: HEPATITIS C
     Route: 058
     Dates: start: 20120613, end: 20120702
  14. REBETOL [Concomitant]
     Route: 048
     Dates: start: 20120613, end: 20120701
  15. SELBEX [Concomitant]
     Route: 048
     Dates: end: 20120722

REACTIONS (1)
  - NEUTROPHIL COUNT DECREASED [None]
